FAERS Safety Report 9786305 (Version 1)
Quarter: 2013Q4

REPORT INFORMATION
  Report Type: Spontaneous
  Country: AT (occurrence: None)
  Receive Date: 20131224
  Receipt Date: 20131224
  Transmission Date: 20140711
  Serious: Yes (Hospitalization)
  Sender: FDA-Public Use
  Company Number: UTC-042150

PATIENT
  Age: 81 Year
  Sex: Female

DRUGS (1)
  1. REMODULIN [Suspect]
     Indication: PRODUCT USED FOR UNKNOWN INDICATION
     Dosage: 180 UG/KG (0.125 UG/KG, 1 IN 1 MIN),SUBCUTANEOUS
     Route: 058
     Dates: start: 201010

REACTIONS (6)
  - Viral infection [None]
  - Stent placement [None]
  - Pulmonary hypertension [None]
  - Anxiety [None]
  - Gastrointestinal disorder [None]
  - General physical health deterioration [None]
